FAERS Safety Report 5650415-9 (Version None)
Quarter: 2008Q1

REPORT INFORMATION
  Report Type: 
  Country: None (occurrence: None)
  Receive Date: 20080305
  Receipt Date: 20080225
  Transmission Date: 20080703
  Serious: Yes (Other)
  Sender: FDA-Public Use
  Company Number: US-JNJFOC-20080206977

PATIENT
  Sex: Female
  Weight: 49.9 kg

DRUGS (3)
  1. DURAGESIC-100 [Suspect]
     Indication: PAIN
     Route: 062
  2. CALCIUM WITH VITAMIN D [Concomitant]
     Indication: OSTEOPOROSIS
     Route: 048
  3. PREDNISONE TAB [Concomitant]
     Indication: ARTHROPOD BITE
     Route: 048

REACTIONS (4)
  - FRACTURED COCCYX [None]
  - HEADACHE [None]
  - NONSPECIFIC REACTION [None]
  - SYNCOPE [None]
